FAERS Safety Report 11429201 (Version 1)
Quarter: 2015Q3

REPORT INFORMATION
  Report Type: Spontaneous
  Country: US (occurrence: US)
  Receive Date: 20150828
  Receipt Date: 20150828
  Transmission Date: 20151125
  Serious: No
  Sender: FDA-Public Use
  Company Number: US-ROCHE-1210788

PATIENT
  Sex: Female
  Weight: 120.31 kg

DRUGS (2)
  1. RIBAVIRIN. [Suspect]
     Active Substance: RIBAVIRIN
     Indication: HEPATITIS C
     Route: 065
     Dates: start: 20130403
  2. PEGASYS [Suspect]
     Active Substance: PEGINTERFERON ALFA-2A
     Indication: HEPATITIS C
     Route: 065
     Dates: start: 20130403

REACTIONS (8)
  - Dysarthria [Unknown]
  - Dyspnoea [Unknown]
  - Gingival pain [Unknown]
  - Dysphonia [Unknown]
  - Dry mouth [Unknown]
  - White blood cell count decreased [Unknown]
  - Gingival bleeding [Unknown]
  - Overweight [Unknown]
